FAERS Safety Report 21927845 (Version 1)
Quarter: 2023Q1

REPORT INFORMATION
  Report Type: Spontaneous
  Country: US (occurrence: None)
  Receive Date: 20230130
  Receipt Date: 20230130
  Transmission Date: 20230418
  Serious: Yes (Death)
  Sender: FDA-Public Use
  Company Number: None

PATIENT
  Age: 32 Year
  Sex: Female
  Weight: 137.25 kg

DRUGS (1)
  1. AMOXICILLIN [Suspect]
     Active Substance: AMOXICILLIN
     Indication: Product used for unknown indication
     Route: 048
     Dates: start: 20230120, end: 20230120

REACTIONS (5)
  - Prescription drug used without a prescription [None]
  - Pulseless electrical activity [None]
  - Dyspnoea [None]
  - Throat tightness [None]
  - Emotional distress [None]

NARRATIVE: CASE EVENT DATE: 20230120
